FAERS Safety Report 13607587 (Version 5)
Quarter: 2017Q3

REPORT INFORMATION
  Report Type: Spontaneous
  Country: KR (occurrence: KR)
  Receive Date: 20170526
  Receipt Date: 20170828
  Transmission Date: 20171127
  Serious: Yes (Hospitalization, Other)
  Sender: FDA-Public Use
  Company Number: KR-009507513-1705KOR013622

PATIENT
  Age: 73 Year
  Sex: Male
  Weight: 71 kg

DRUGS (53)
  1. CISPLATIN. [Concomitant]
     Active Substance: CISPLATIN
     Dosage: 140 MG, ONCE, CYCLE 5 (50 MG/100 ML)
     Route: 042
     Dates: start: 20160927, end: 20160927
  2. DEX (DEXAMETHASONE SODIUM PHOSPHATE) [Concomitant]
     Dosage: 8 MG, ONCE
     Route: 042
     Dates: start: 20160831, end: 20160901
  3. DEX (DEXAMETHASONE SODIUM PHOSPHATE) [Concomitant]
     Dosage: 12 MG, ONCE
     Route: 042
     Dates: start: 20160927, end: 20160927
  4. MANNITOL. [Concomitant]
     Active Substance: MANNITOL
     Dosage: 100 MG, ONCE
     Route: 042
     Dates: start: 20160830, end: 20160830
  5. CRESTOR [Concomitant]
     Active Substance: ROSUVASTATIN CALCIUM
     Indication: HYPERTENSION
     Dosage: 10 MG, ONCE
     Route: 048
  6. EMEND (FOSAPREPITANT DIMEGLUMINE) [Suspect]
     Active Substance: FOSAPREPITANT DIMEGLUMINE
     Dosage: 150 MG, ONCE, CYCLE 3
     Route: 042
     Dates: start: 20160801, end: 20160801
  7. EMEND (FOSAPREPITANT DIMEGLUMINE) [Suspect]
     Active Substance: FOSAPREPITANT DIMEGLUMINE
     Dosage: 150 MG, ONCE, CYCLE 4
     Route: 042
     Dates: start: 20160830, end: 20160830
  8. FLUOROURACIL. [Concomitant]
     Active Substance: FLUOROURACIL
     Indication: CHEMOTHERAPY
     Dosage: 1770 MG, ONCE, CYCLE 4
     Route: 042
     Dates: start: 20160830, end: 20160902
  9. DEX (DEXAMETHASONE SODIUM PHOSPHATE) [Concomitant]
     Dosage: 12 MG, ONCE
     Route: 042
     Dates: start: 20161027, end: 20161027
  10. DEXAMETHASONE. [Concomitant]
     Active Substance: DEXAMETHASONE
     Dosage: 8 MG, BID
     Route: 048
     Dates: start: 20161029, end: 20161030
  11. ALOXI [Concomitant]
     Active Substance: PALONOSETRON HYDROCHLORIDE
     Dosage: 0.25 MG, ONCE
     Route: 042
     Dates: start: 20160712, end: 20160712
  12. LASIX [Concomitant]
     Active Substance: FUROSEMIDE
     Indication: PROPHYLAXIS
     Dosage: 20 MG, ONCE
     Route: 042
     Dates: start: 20160616, end: 20160616
  13. MANNITOL. [Concomitant]
     Active Substance: MANNITOL
     Indication: PROPHYLAXIS
     Dosage: 100 ML, ONCE
     Route: 042
     Dates: start: 20160616, end: 20160616
  14. EMEND (FOSAPREPITANT DIMEGLUMINE) [Suspect]
     Active Substance: FOSAPREPITANT DIMEGLUMINE
     Dosage: 150 MG, ONCE, CYCLE 2
     Route: 042
     Dates: start: 20160712, end: 20160712
  15. CISPLATIN. [Concomitant]
     Active Substance: CISPLATIN
     Dosage: 177 MG, ONCE, CYCLE 2 (50 MG/100 ML)
     Route: 042
     Dates: start: 20160712, end: 20160712
  16. CISPLATIN. [Concomitant]
     Active Substance: CISPLATIN
     Dosage: 177 MG, ONCE, CYCLE 3 (50 MG/100 ML)
     Route: 042
     Dates: start: 20160801, end: 20160801
  17. DEX (DEXAMETHASONE SODIUM PHOSPHATE) [Concomitant]
     Indication: PROPHYLAXIS OF NAUSEA AND VOMITING
     Dosage: 12 MG, ONCE
     Route: 042
     Dates: start: 20160616, end: 20160616
  18. DEX (DEXAMETHASONE SODIUM PHOSPHATE) [Concomitant]
     Dosage: 8 MG, ONCE
     Route: 042
     Dates: start: 20160617, end: 20160619
  19. DEX (DEXAMETHASONE SODIUM PHOSPHATE) [Concomitant]
     Dosage: 12 MG, ONCE
     Route: 042
     Dates: start: 20160712, end: 20160712
  20. DEX (DEXAMETHASONE SODIUM PHOSPHATE) [Concomitant]
     Dosage: 8 MG, BID
     Route: 042
     Dates: start: 20160902, end: 20160902
  21. DEX (DEXAMETHASONE SODIUM PHOSPHATE) [Concomitant]
     Dosage: 12 MG, ONCE
     Route: 042
     Dates: start: 20160801, end: 20160801
  22. ALOXI [Concomitant]
     Active Substance: PALONOSETRON HYDROCHLORIDE
     Indication: PROPHYLAXIS OF NAUSEA AND VOMITING
     Dosage: 0.25 MG, ONCE
     Route: 042
     Dates: start: 20160616, end: 20160616
  23. ALOXI [Concomitant]
     Active Substance: PALONOSETRON HYDROCHLORIDE
     Dosage: 0.25 MG, ONCE
     Route: 042
     Dates: start: 20161027, end: 20161027
  24. LASIX [Concomitant]
     Active Substance: FUROSEMIDE
     Indication: PREMEDICATION
     Dosage: 20 MG, ONCE
     Route: 042
     Dates: start: 20160712, end: 20160712
  25. MANNITOL. [Concomitant]
     Active Substance: MANNITOL
     Dosage: 100 MG, ONCE
     Route: 042
     Dates: start: 20160927, end: 20160927
  26. SYLCON [Concomitant]
     Indication: CONSTIPATION PROPHYLAXIS
     Dosage: 625 MG, TID
     Route: 048
     Dates: start: 20160622, end: 20160623
  27. OLMETEC [Concomitant]
     Active Substance: OLMESARTAN MEDOXOMIL
     Indication: HYPERTENSION
     Dosage: 20 MG, ONCE
     Route: 048
  28. EMEND (FOSAPREPITANT DIMEGLUMINE) [Suspect]
     Active Substance: FOSAPREPITANT DIMEGLUMINE
     Dosage: 150 MG, ONCE, CYCLE 5
     Route: 042
     Dates: start: 20160927, end: 20160927
  29. CISPLATIN. [Concomitant]
     Active Substance: CISPLATIN
     Dosage: 140 MG, ONCE, CYCLE 6 (50 MG/100 ML)
     Route: 042
     Dates: start: 20161027, end: 20161027
  30. DEX (DEXAMETHASONE SODIUM PHOSPHATE) [Concomitant]
     Dosage: 12 MG, ONCE
     Route: 042
     Dates: start: 20160830, end: 20160830
  31. ALOXI [Concomitant]
     Active Substance: PALONOSETRON HYDROCHLORIDE
     Dosage: 0.25 MG, ONCE
     Route: 042
     Dates: start: 20160927, end: 20160927
  32. LASIX [Concomitant]
     Active Substance: FUROSEMIDE
     Dosage: 20 MG, ONCE
     Route: 042
     Dates: start: 20161027, end: 20161027
  33. DEX (DEXAMETHASONE SODIUM PHOSPHATE) [Concomitant]
     Dosage: 8 MG, ONCE
     Route: 042
     Dates: start: 20160928, end: 20160930
  34. LASIX [Concomitant]
     Active Substance: FUROSEMIDE
     Dosage: 20 MG, ONCE
     Route: 042
     Dates: start: 20160801, end: 20160801
  35. MANNITOL. [Concomitant]
     Active Substance: MANNITOL
     Dosage: 100 ML, ONCE
     Route: 042
     Dates: start: 20160712, end: 20160712
  36. MANNITOL. [Concomitant]
     Active Substance: MANNITOL
     Dosage: 100 ML, ONCE
     Route: 042
     Dates: start: 20060801, end: 20160801
  37. CISPLATIN. [Concomitant]
     Active Substance: CISPLATIN
     Indication: CHEMOTHERAPY
     Dosage: 27 MG, ONCE, CYCLE 1 (10 MG/20 ML)
     Route: 042
     Dates: start: 20160616, end: 20160616
  38. FLUOROURACIL. [Concomitant]
     Active Substance: FLUOROURACIL
     Dosage: 1770 MG, ONCE, CYCLE 5
     Route: 042
     Dates: start: 20160927, end: 20160930
  39. EMEND (FOSAPREPITANT DIMEGLUMINE) [Suspect]
     Active Substance: FOSAPREPITANT DIMEGLUMINE
     Indication: PROPHYLAXIS OF NAUSEA AND VOMITING
     Dosage: 150 MG, ONCE, CYCLE 1
     Route: 042
     Dates: start: 20160616, end: 20160616
  40. DEX (DEXAMETHASONE SODIUM PHOSPHATE) [Concomitant]
     Dosage: 8 MG, ONCE
     Route: 042
     Dates: start: 20160713, end: 20160715
  41. ALOXI [Concomitant]
     Active Substance: PALONOSETRON HYDROCHLORIDE
     Dosage: 0.25 MG, ONCE
     Route: 042
     Dates: start: 20160830, end: 20160830
  42. LASIX [Concomitant]
     Active Substance: FUROSEMIDE
     Dosage: 20 MG, ONCE
     Route: 042
     Dates: start: 20160927, end: 20160927
  43. DEXILANT [Concomitant]
     Active Substance: DEXLANSOPRAZOLE
     Indication: PROPHYLAXIS
     Dosage: 30 MG, ONCE
     Route: 048
     Dates: start: 20160608, end: 20160610
  44. ASPIRIN PROTECT [Concomitant]
     Active Substance: ASPIRIN
     Indication: HYPERTENSION
     Dosage: 100 MG, ONCE
     Route: 048
  45. EMEND (FOSAPREPITANT DIMEGLUMINE) [Suspect]
     Active Substance: FOSAPREPITANT DIMEGLUMINE
     Dosage: 150 MG, ONCE, CYCLE 6
     Route: 042
     Dates: start: 20161027, end: 20161027
  46. CISPLATIN. [Concomitant]
     Active Substance: CISPLATIN
     Indication: KERATINISING SQUAMOUS CELL CARCINOMA OF NASOPHARYNX
     Dosage: 150 MG, ONCE, CYCLE 1 (50 MG/100 ML)
     Route: 042
     Dates: start: 20160616, end: 20160616
  47. CISPLATIN. [Concomitant]
     Active Substance: CISPLATIN
     Dosage: 140 MG, ONCE, CYCLE 4 (50 MG/100 ML)
     Route: 042
     Dates: start: 20160830, end: 20160830
  48. FLUOROURACIL. [Concomitant]
     Active Substance: FLUOROURACIL
     Dosage: 1770 MG, ONCE, CYCLE 6
     Route: 042
     Dates: start: 20161027, end: 20161030
  49. DEXAMETHASONE. [Concomitant]
     Active Substance: DEXAMETHASONE
     Indication: PROPHYLAXIS OF NAUSEA AND VOMITING
     Dosage: 8 MG, ONCE
     Route: 048
     Dates: start: 20161028, end: 20161028
  50. ALOXI [Concomitant]
     Active Substance: PALONOSETRON HYDROCHLORIDE
     Dosage: 0.25 MG, ONCE
     Route: 042
     Dates: start: 20160801, end: 20160801
  51. LASIX [Concomitant]
     Active Substance: FUROSEMIDE
     Dosage: 20 MG, ONCE
     Route: 042
     Dates: start: 20160830, end: 20160830
  52. MANNITOL. [Concomitant]
     Active Substance: MANNITOL
     Dosage: 100 MG, ONCE
     Route: 042
     Dates: start: 20161027, end: 20161027
  53. MAGNESIUM OXIDE. [Concomitant]
     Active Substance: MAGNESIUM OXIDE
     Indication: CONSTIPATION PROPHYLAXIS
     Dosage: 500 MG, TID
     Route: 048
     Dates: start: 20160624

REACTIONS (9)
  - Jugular vein thrombosis [Not Recovered/Not Resolved]
  - Pyrexia [Recovered/Resolved]
  - Stomatitis [Recovered/Resolved]
  - Otitis media [Recovered/Resolved]
  - Ear pain [Recovered/Resolved]
  - Device related infection [Recovered/Resolved]
  - Oral pain [Recovered/Resolved]
  - Hiccups [Recovered/Resolved]
  - Nausea [Recovered/Resolved]

NARRATIVE: CASE EVENT DATE: 20160703
